FAERS Safety Report 24284001 (Version 1)
Quarter: 2024Q3

REPORT INFORMATION
  Report Type: Spontaneous
  Country: IT (occurrence: IT)
  Receive Date: 20240905
  Receipt Date: 20240905
  Transmission Date: 20241016
  Serious: Yes (Other)
  Sender: TAKEDA
  Company Number: None

PATIENT
  Age: 59 Year
  Sex: Female

DRUGS (3)
  1. BRINTELLIX [Suspect]
     Active Substance: VORTIOXETINE HYDROBROMIDE
     Indication: Intentional overdose
     Dosage: UNK UNK, QD
     Route: 048
     Dates: start: 20240724, end: 20240724
  2. EN [Suspect]
     Active Substance: DELORAZEPAM
     Indication: Intentional overdose
     Dosage: UNK
     Route: 048
     Dates: start: 20240724, end: 20240724
  3. RIVOTRIL [Suspect]
     Active Substance: CLONAZEPAM
     Indication: Intentional overdose
     Dosage: UNK
     Route: 048
     Dates: start: 20240724, end: 20240724

REACTIONS (3)
  - Sopor [Not Recovered/Not Resolved]
  - Somnolence [Not Recovered/Not Resolved]
  - Intentional overdose [Not Recovered/Not Resolved]

NARRATIVE: CASE EVENT DATE: 20240724
